FAERS Safety Report 26134744 (Version 1)
Quarter: 2025Q4

REPORT INFORMATION
  Report Type: Spontaneous
  Country: US (occurrence: US)
  Receive Date: 20251209
  Receipt Date: 20251209
  Transmission Date: 20260118
  Serious: No
  Sender: AUROBINDO
  Company Number: US-AUROBINDO-AUR-APL-2025-004921

PATIENT

DRUGS (1)
  1. MIRTAZAPINE [Suspect]
     Active Substance: MIRTAZAPINE
     Indication: Product used for unknown indication
     Dosage: UNK
     Route: 065

REACTIONS (13)
  - Defaecation urgency [Unknown]
  - Abdominal pain [Unknown]
  - Feeling abnormal [Unknown]
  - Malaise [Unknown]
  - Frequent bowel movements [Unknown]
  - Diarrhoea [Unknown]
  - Affective disorder [Unknown]
  - Hypophagia [Unknown]
  - Pain [Unknown]
  - Sleep disorder [Unknown]
  - Product container issue [Unknown]
  - Product odour abnormal [Unknown]
  - Product quality issue [Unknown]
